FAERS Safety Report 5475246-4 (Version None)
Quarter: 2007Q4

REPORT INFORMATION
  Report Type: 
  Country: None (occurrence: None)
  Receive Date: 20071002
  Receipt Date: 20070920
  Transmission Date: 20080405
  Serious: Yes (Other)
  Sender: FDA-Public Use
  Company Number: US-PFIZER INC-2007080058

PATIENT
  Sex: Female
  Weight: 65.8 kg

DRUGS (5)
  1. CHANTIX [Suspect]
     Indication: SMOKING CESSATION THERAPY
     Dates: start: 20070901, end: 20070920
  2. DRUG, UNSPECIFIED [Suspect]
  3. DRUG, UNSPECIFIED [Concomitant]
  4. CENESTIN [Concomitant]
  5. ANTIGLAUCOMA PREPARATIONS AND MIOTICS [Concomitant]

REACTIONS (3)
  - AMNESIA [None]
  - MENTAL DISORDER [None]
  - PARANOIA [None]
